FAERS Safety Report 8967228 (Version 1)
Quarter: 2012Q4

REPORT INFORMATION
  Report Type: 
  Country: US (occurrence: US)
  Receive Date: 20121214
  Receipt Date: 20121214
  Transmission Date: 20130627
  Serious: No
  Sender: FDA-Public Use
  Company Number: US-GLAXOSMITHKLINE-A0961787A

PATIENT
  Age: 61 Year
  Sex: Female

DRUGS (3)
  1. FLUTICASONE PROPIONATE [Suspect]
     Indication: MULTIPLE ALLERGIES
     Dosage: 2SPR Twice per day
     Route: 045
  2. MIRALAX [Concomitant]
  3. FOSAMAX [Concomitant]

REACTIONS (3)
  - Ear discomfort [Unknown]
  - Dry throat [Unknown]
  - Nasal congestion [Unknown]
